FAERS Safety Report 6257939-4 (Version None)
Quarter: 2009Q3

REPORT INFORMATION
  Report Type: 
  Country: None (occurrence: None)
  Receive Date: 20090707
  Receipt Date: 20090629
  Transmission Date: 20100115
  Serious: Yes (Other)
  Sender: FDA-Public Use
  Company Number: US-BAYER-200922470GPV

PATIENT
  Age: 26 Year
  Sex: Female

DRUGS (1)
  1. ALEMTUZUMAB [Suspect]
     Indication: MULTIPLE SCLEROSIS
     Dosage: DOSE BLINDED
     Route: 042
     Dates: start: 20081110, end: 20081114

REACTIONS (1)
  - CERVICAL DYSPLASIA [None]
